FAERS Safety Report 7741814-X (Version None)
Quarter: 2011Q3

REPORT INFORMATION
  Report Type: 
  Country: None (occurrence: None)
  Receive Date: 20110912
  Receipt Date: 20110907
  Transmission Date: 20111222
  Serious: No
  Sender: FDA-Public Use
  Company Number: US-PFIZER INC-2011170126

PATIENT
  Sex: Female
  Weight: 55.782 kg

DRUGS (2)
  1. ADVIL LIQUI-GELS [Suspect]
     Dosage: 200 MG, DAILY
     Dates: start: 20110101
  2. ADVIL LIQUI-GELS [Suspect]
     Dosage: ONE EVERY OTHER NIGHT

REACTIONS (1)
  - BLADDER DISORDER [None]
